FAERS Safety Report 9422381 (Version 3)
Quarter: 2013Q3

REPORT INFORMATION
  Report Type: Spontaneous
  Country: BE (occurrence: BE)
  Receive Date: 20130722
  Receipt Date: 20130729
  Transmission Date: 20140515
  Serious: Yes (Hospitalization)
  Sender: FDA-Public Use
  Company Number: 2013036917

PATIENT
  Age: 64 Year
  Sex: Male

DRUGS (1)
  1. HIZENTRA [Suspect]
     Route: 058
     Dates: start: 20120709

REACTIONS (1)
  - Pneumonia [None]
